FAERS Safety Report 11467174 (Version 1)
Quarter: 2015Q4

REPORT INFORMATION
  Report Type: Spontaneous
  Country: FR (occurrence: FR)
  Receive Date: 20151028
  Receipt Date: 20151028
  Transmission Date: 20160304
  Serious: Yes (Other)
  Sender: FDA-Public Use
  Company Number: FR-OCTA-GAM25015FR

PATIENT
  Age: 68 Year
  Sex: Female

DRUGS (4)
  1. OCTAGAM IMMUNE GLOBULIN (HUMAN) [Suspect]
     Active Substance: HUMAN IMMUNOGLOBULIN G
     Indication: THROMBOCYTOPENIC PURPURA
     Route: 042
     Dates: start: 20150519, end: 20150523
  2. LEVOTHYROX [Concomitant]
     Active Substance: LEVOTHYROXINE
     Indication: PRODUCT USED FOR UNKNOWN INDICATION
  3. NPLATE [Concomitant]
     Active Substance: ROMIPLOSTIM
     Indication: THROMBOCYTOPENIC PURPURA
  4. RITUXIMAB [Concomitant]
     Active Substance: RITUXIMAB
     Indication: THROMBOCYTOPENIC PURPURA

REACTIONS (1)
  - Deep vein thrombosis [Recovered/Resolved]

NARRATIVE: CASE EVENT DATE: 20150526
